FAERS Safety Report 18533576 (Version 1)
Quarter: 2020Q4

REPORT INFORMATION
  Report Type: Spontaneous
  Country: FR (occurrence: FR)
  Receive Date: 20201123
  Receipt Date: 20201123
  Transmission Date: 20210114
  Serious: Yes (Hospitalization)
  Sender: FDA-Public Use
  Company Number: FR-TEVA-2020-FR-1850311

PATIENT
  Age: 59 Year
  Sex: Female

DRUGS (1)
  1. TEVAGRASTIM [Suspect]
     Active Substance: FILGRASTIM
     Indication: BLOOD DISORDER PROPHYLAXIS
     Dosage: 1 DOSAGE FORMS
     Route: 058
     Dates: start: 2020, end: 2020

REACTIONS (2)
  - Chest discomfort [Recovered/Resolved]
  - Gastrointestinal disorder [Recovered/Resolved]

NARRATIVE: CASE EVENT DATE: 2020
